FAERS Safety Report 4901845-1 (Version None)
Quarter: 2006Q1

REPORT INFORMATION
  Report Type: 
  Country: None (occurrence: None)
  Receive Date: 20060203
  Receipt Date: 20060203
  Transmission Date: 20060701
  Serious: Yes (Life-Threatening, Hospitalization)
  Sender: FDA-Public Use
  Company Number: None

PATIENT
  Age: 72 Year
  Sex: Male
  Weight: 74.6621 kg

DRUGS (1)
  1. BENZOCAINE 20% [Suspect]
     Indication: DIAGNOSTIC PROCEDURE
     Dosage: TOP
     Route: 061
     Dates: start: 20051215, end: 20051215

REACTIONS (3)
  - BLOOD METHAEMOGLOBIN PRESENT [None]
  - HYPOXIA [None]
  - OXYGEN SATURATION DECREASED [None]
